FAERS Safety Report 14466352 (Version 1)
Quarter: 2018Q1

REPORT INFORMATION
  Report Type: Spontaneous
  Country: CA (occurrence: CA)
  Receive Date: 20180131
  Receipt Date: 20180131
  Transmission Date: 20180509
  Serious: Yes (Death, Other)
  Sender: FDA-Public Use
  Company Number: CA-AUROBINDO-AUR-APL-2018-003655

PATIENT
  Age: 18 Year
  Sex: Female

DRUGS (6)
  1. QUETIAPINE. [Suspect]
     Active Substance: QUETIAPINE
     Indication: PRODUCT USED FOR UNKNOWN INDICATION
     Dosage: 20 PILLS OF QUETIAPINE 25MG
     Route: 065
  2. CITALOPRAM [Concomitant]
     Active Substance: CITALOPRAM HYDROBROMIDE
     Indication: PRODUCT USED FOR UNKNOWN INDICATION
     Dosage: UNK
  3. ISONIAZID. [Concomitant]
     Active Substance: ISONIAZID
     Indication: PRODUCT USED FOR UNKNOWN INDICATION
  4. PARACETAMOL [Suspect]
     Active Substance: ACETAMINOPHEN
     Indication: PRODUCT USED FOR UNKNOWN INDICATION
     Dosage: 40 PILLS OF STANDARD 325MG
     Route: 065
  5. ATOMOXETINE. [Concomitant]
     Active Substance: ATOMOXETINE HYDROCHLORIDE
     Indication: PRODUCT USED FOR UNKNOWN INDICATION
  6. ASPIRIN                            /00002701/ [Suspect]
     Active Substance: ASPIRIN
     Indication: PRODUCT USED FOR UNKNOWN INDICATION
     Dosage: 15 PILLS
     Route: 065

REACTIONS (20)
  - Agitation [Unknown]
  - Oxygen saturation decreased [Unknown]
  - Liver injury [Unknown]
  - Treatment noncompliance [Unknown]
  - Cardiac failure [Unknown]
  - Hepatitis [Unknown]
  - Pericardial effusion [Unknown]
  - Overdose [Unknown]
  - Oedema peripheral [Unknown]
  - Hepatic failure [Unknown]
  - Encephalopathy [Unknown]
  - Myalgia [Unknown]
  - Myocarditis [Fatal]
  - Pleural effusion [Unknown]
  - Multiple organ dysfunction syndrome [Unknown]
  - Hepatic congestion [Unknown]
  - Nausea [Unknown]
  - Face oedema [Unknown]
  - Toxicity to various agents [Fatal]
  - Seizure [Unknown]
